FAERS Safety Report 9440388 (Version 2)
Quarter: 2013Q3

REPORT INFORMATION
  Report Type: Spontaneous
  Country: US (occurrence: US)
  Receive Date: 20130805
  Receipt Date: 20130903
  Transmission Date: 20140515
  Serious: Yes (Other)
  Sender: FDA-Public Use
  Company Number: US-B.I. PHARMACEUTICALS,INC./RIDGEFIELD-2013-BI-22654BP

PATIENT
  Age: 78 Year
  Sex: Male
  Weight: 88 kg

DRUGS (6)
  1. TRADJENTA [Suspect]
     Indication: TYPE 2 DIABETES MELLITUS
     Dosage: 5 MG
     Route: 048
     Dates: start: 20130421, end: 20130424
  2. TRADJENTA [Suspect]
     Dosage: 5 MG
     Route: 048
     Dates: start: 20130521, end: 20130724
  3. AZOR [Concomitant]
     Indication: HYPERTENSION
     Dosage: STRENGTH 10/40
     Dates: start: 20090812
  4. LIPITOR [Concomitant]
     Dosage: 40 MG
     Dates: start: 20110214
  5. ASA [Concomitant]
     Indication: CORONARY ARTERY DISEASE
     Dosage: 81 MG
  6. ACARBOSE [Concomitant]
     Indication: TYPE 2 DIABETES MELLITUS
     Dosage: 300 MG

REACTIONS (1)
  - Pancreatitis [Recovered/Resolved]
